FAERS Safety Report 9292241 (Version 1)
Quarter: 2012Q4

REPORT INFORMATION
  Report Type: Spontaneous
  Country: JP (occurrence: None)
  Receive Date: 20121128
  Receipt Date: 20121128
  Transmission Date: 20130627
  Serious: No
  Sender: FDA-Public Use
  Company Number: JP-CLINIGEN HEALTHCARE LIMITED-003013

PATIENT
  Age: 62 Year
  Sex: Male

DRUGS (7)
  1. FOSCAVIR (FOSCAVIR) [Suspect]
     Indication: CYTOMEGALOVIRUS INFECTION
     Dosage: 1.00 times per 1.0 days
     Route: 041
     Dates: start: 20120908, end: 20120910
  2. PEGINTRON (PEGINTRON) [Suspect]
     Dosage: 1.00 times per-1.0 weeks
     Route: 058
     Dates: start: 20120912
  3. FOSCAVIR (FOSCAVIR) [Suspect]
     Indication: CYTOMEGALOVIRUS INFECTION
     Dosage: 1.00 times Per 1.0 Days
     Route: 041
     Dates: start: 20120913, end: 20120918
  4. CRAVIT [Concomitant]
  5. PIPERACILLIN (PIPERACILLIN) [Concomitant]
  6. INTRON A (INTRON A) [Concomitant]
  7. VANCOMYCIN (VANCOMYCIN) [Concomitant]

REACTIONS (2)
  - Pyrexia [None]
  - C-reactive protein increased [None]
